FAERS Safety Report 19308770 (Version 1)
Quarter: 2021Q2

REPORT INFORMATION
  Report Type: Spontaneous
  Country: US (occurrence: US)
  Receive Date: 20210526
  Receipt Date: 20210526
  Transmission Date: 20210717
  Serious: No
  Sender: FDA-Public Use
  Company Number: US-PFIZER INC-2021263287

PATIENT
  Age: 43 Year
  Sex: Female

DRUGS (1)
  1. XELJANZ XR [Suspect]
     Active Substance: TOFACITINIB CITRATE
     Indication: RHEUMATOID ARTHRITIS
     Dosage: 11 MG, DAILY
     Route: 048
     Dates: start: 20210302, end: 202103

REACTIONS (5)
  - Feeling hot [Unknown]
  - Feeling abnormal [Unknown]
  - Immunoglobulins decreased [Unknown]
  - Feeling jittery [Unknown]
  - Dizziness [Unknown]

NARRATIVE: CASE EVENT DATE: 202103
